FAERS Safety Report 21200272 (Version 1)
Quarter: 2022Q3

REPORT INFORMATION
  Report Type: Spontaneous
  Country: US (occurrence: None)
  Receive Date: 20220810
  Receipt Date: 20220810
  Transmission Date: 20221027
  Serious: No
  Sender: FDA-Public Use
  Company Number: None

PATIENT
  Age: 42 Year
  Sex: Female

DRUGS (5)
  1. CREST PRO-HEALTH RINSE [Suspect]
     Active Substance: CETYLPYRIDINIUM CHLORIDE
     Dosage: FREQUENCY : TWICE A DAY;?
     Route: 048
     Dates: start: 20220809, end: 20220810
  2. VITAMINS [Concomitant]
     Active Substance: VITAMINS
  3. Cranberry supplement [Concomitant]
  4. Biotin supplement [Concomitant]
  5. PROBIOTICS NOS [Concomitant]
     Active Substance: PROBIOTICS NOS

REACTIONS (2)
  - Tongue discomfort [None]
  - Taste disorder [None]

NARRATIVE: CASE EVENT DATE: 20220810
